FAERS Safety Report 18276648 (Version 3)
Quarter: 2020Q4

REPORT INFORMATION
  Report Type: Spontaneous
  Country: IT (occurrence: IT)
  Receive Date: 20200917
  Receipt Date: 20201015
  Transmission Date: 20210113
  Serious: Yes (Other)
  Sender: FDA-Public Use
  Company Number: IT-AUROBINDO-AUR-APL-2020-047249

PATIENT
  Age: 48 Year
  Sex: Male

DRUGS (4)
  1. SIMVASTATIN TABLET [Suspect]
     Active Substance: SIMVASTATIN
     Indication: TYPE IIB HYPERLIPIDAEMIA
     Dosage: 10 MILLIGRAM, ONCE A DAY
     Route: 065
  2. SIMVASTATIN TABLET [Suspect]
     Active Substance: SIMVASTATIN
     Indication: TYPE IIA HYPERLIPIDAEMIA
     Dosage: UNK
     Route: 065
  3. PRAVASTATIN. [Suspect]
     Active Substance: PRAVASTATIN
     Indication: TYPE IIA HYPERLIPIDAEMIA
  4. PRAVASTATIN. [Suspect]
     Active Substance: PRAVASTATIN
     Indication: TYPE IIB HYPERLIPIDAEMIA
     Dosage: 20 MILLIGRAM, ONCE A DAY
     Route: 065

REACTIONS (3)
  - Fall [Unknown]
  - Myositis [Unknown]
  - Drug intolerance [Unknown]
